FAERS Safety Report 5266752-6 (Version None)
Quarter: 2007Q1

REPORT INFORMATION
  Report Type: 
  Country: None (occurrence: None)
  Receive Date: 20070307
  Receipt Date: 20070224
  Transmission Date: 20070707
  Serious: Yes (Other)
  Sender: FDA-Public Use
  Company Number: 2007308710

PATIENT
  Age: 47 Year
  Sex: Female

DRUGS (7)
  1. ROGAINE [Suspect]
     Indication: ALOPECIA
     Dosage: 2 IN 1 D, TOPICAL
     Route: 061
     Dates: start: 20070201, end: 20070223
  2. ENTEX (GUAIFENESIN, PHENYLEPHRINE HYDROCHLORIDE, PHENYLPROPANOLAMINE [Concomitant]
  3. VITAMIN B12 [Concomitant]
  4. SINGULAIR [Concomitant]
  5. ZYRTEC [Concomitant]
  6. PROTEIN SUPPLEMENTS (PROTEIN SUPPLEMENTS) [Concomitant]
  7. CALCIUM WITH VITAMIN D (CALCIUM PHOSPHATE, CALCIUM SODIUM LACTATE, ERG [Concomitant]

REACTIONS (4)
  - BLISTER [None]
  - OEDEMA PERIPHERAL [None]
  - PAIN [None]
  - PRURITUS [None]
